FAERS Safety Report 10029734 (Version 1)
Quarter: 2014Q1

REPORT INFORMATION
  Report Type: Spontaneous
  Country: US (occurrence: None)
  Receive Date: 20140321
  Receipt Date: 20140321
  Transmission Date: 20141002
  Serious: Yes (Hospitalization)
  Sender: FDA-Public Use
  Company Number: None

PATIENT
  Age: 66 Year
  Sex: Female

DRUGS (2)
  1. ENBREL [Suspect]
     Route: 058
     Dates: start: 20130912
  2. ENBREL [Suspect]
     Route: 058
     Dates: start: 20130912

REACTIONS (3)
  - Drug dose omission [None]
  - Cerebrovascular accident [None]
  - Migraine [None]
